FAERS Safety Report 8026951-7 (Version None)
Quarter: 2012Q1

REPORT INFORMATION
  Report Type: 
  Country: None (occurrence: None)
  Receive Date: 20120103
  Receipt Date: 20111222
  Transmission Date: 20120608
  Serious: Yes (Other)
  Sender: FDA-Public Use
  Company Number: 2011SP059428

PATIENT
  Age: 23 Year
  Sex: Female

DRUGS (1)
  1. CERAZETTE (DESOGESTREL  /00754001/) [Suspect]
     Indication: PRODUCT USED FOR UNKNOWN INDICATION

REACTIONS (2)
  - SWELLING FACE [None]
  - HISTAMINE INTOLERANCE [None]
